FAERS Safety Report 16447130 (Version 6)
Quarter: 2023Q1

REPORT INFORMATION
  Report Type: Spontaneous
  Country: DE (occurrence: DE)
  Receive Date: 20190618
  Receipt Date: 20230109
  Transmission Date: 20230418
  Serious: Yes (Other)
  Sender: FDA-Public Use
  Company Number: PHHY2019DE133747

PATIENT
  Age: 60 Year
  Sex: Male

DRUGS (4)
  1. RITUXIMAB [Suspect]
     Active Substance: RITUXIMAB
     Indication: Mantle cell lymphoma stage IV
     Dosage: 1000 MG/M2, CYCLIC, EVERY 8 WEEKS (MAINTENANCE THERAPY, RECEIVED THREE CYCLES)
     Route: 065
  2. RITUXIMAB [Suspect]
     Active Substance: RITUXIMAB
     Indication: Immunosuppressant drug therapy
  3. APREMILAST [Concomitant]
     Active Substance: APREMILAST
     Indication: Bronchopulmonary aspergillosis
     Dosage: UNK
     Route: 065
  4. APREMILAST [Concomitant]
     Active Substance: APREMILAST
     Indication: Aspergillus infection

REACTIONS (2)
  - Thrombocytopenia [Unknown]
  - Lymphopenia [Recovered/Resolved]
